FAERS Safety Report 13634161 (Version 1)
Quarter: 2017Q2

REPORT INFORMATION
  Report Type: Spontaneous
  Country: US (occurrence: US)
  Receive Date: 20170531
  Receipt Date: 20170531
  Transmission Date: 20170830
  Serious: No
  Sender: FDA-Public Use
  Company Number: US-ASTELLAS-1609532

PATIENT
  Sex: Female

DRUGS (3)
  1. TARCEVA [Suspect]
     Active Substance: ERLOTINIB HYDROCHLORIDE
     Indication: LUNG NEOPLASM MALIGNANT
     Route: 048
     Dates: start: 20150424
  2. TARCEVA [Suspect]
     Active Substance: ERLOTINIB HYDROCHLORIDE
     Indication: HAEMATOPOIETIC NEOPLASM
  3. TARCEVA [Suspect]
     Active Substance: ERLOTINIB HYDROCHLORIDE
     Indication: LYMPHATIC SYSTEM NEOPLASM

REACTIONS (6)
  - Diarrhoea [Unknown]
  - Dry skin [Unknown]
  - Malaise [Unknown]
  - Nausea [Unknown]
  - Oral pain [Unknown]
  - Fatigue [Unknown]
